FAERS Safety Report 9271433 (Version 3)
Quarter: 2013Q2

REPORT INFORMATION
  Report Type: Spontaneous
  Country: US (occurrence: US)
  Receive Date: 20130506
  Receipt Date: 20130614
  Transmission Date: 20140414
  Serious: Yes (Disabling, Other)
  Sender: FDA-Public Use
  Company Number: US-PFIZER INC-2013135930

PATIENT
  Age: 65 Year
  Sex: Female

DRUGS (1)
  1. NICOTROL INHALER [Suspect]
     Dosage: UNK

REACTIONS (5)
  - Abasia [Unknown]
  - Rash generalised [Unknown]
  - Rash erythematous [Unknown]
  - Rash erythematous [Unknown]
  - Pruritus [Unknown]
